FAERS Safety Report 20687946 (Version 4)
Quarter: 2022Q2

REPORT INFORMATION
  Report Type: Report from Study
  Country: US (occurrence: US)
  Receive Date: 20220408
  Receipt Date: 20220613
  Transmission Date: 20220721
  Serious: No
  Sender: FDA-Public Use
  Company Number: US-NOVARTISTESTPH-NVSC2022US079445

PATIENT
  Sex: Female

DRUGS (1)
  1. PROMACTA [Suspect]
     Active Substance: ELTROMBOPAG OLAMINE
     Indication: Aplastic anaemia
     Dosage: 75 MG, QD
     Route: 048

REACTIONS (6)
  - Vision blurred [Unknown]
  - Ocular icterus [Unknown]
  - Nausea [Unknown]
  - Blood bilirubin increased [Unknown]
  - Eye pain [Unknown]
  - Decreased appetite [Unknown]
